FAERS Safety Report 10353778 (Version 1)
Quarter: 2014Q3

REPORT INFORMATION
  Report Type: Spontaneous
  Country: US (occurrence: None)
  Receive Date: 20140729
  Receipt Date: 20140729
  Transmission Date: 20150326
  Serious: No
  Sender: FDA-Public Use
  Company Number: None

PATIENT
  Age: 23 Year
  Sex: Female
  Weight: 0 kg

DRUGS (1)
  1. IMPLANON [Suspect]
     Active Substance: ETONOGESTREL

REACTIONS (10)
  - Malaise [None]
  - Gait disturbance [None]
  - Vertigo [None]
  - Abdominal pain upper [None]
  - Aphagia [None]
  - Nausea [None]
  - Dizziness [None]
  - Headache [None]
  - Fatigue [None]
  - Impaired work ability [None]

NARRATIVE: CASE EVENT DATE: 20140714
